FAERS Safety Report 16684766 (Version 3)
Quarter: 2019Q3

REPORT INFORMATION
  Report Type: Report from Study
  Country: US (occurrence: US)
  Receive Date: 20190808
  Receipt Date: 20190821
  Transmission Date: 20191004
  Serious: Yes (Death, Life-Threatening, Hospitalization)
  Sender: FDA-Public Use
  Company Number: US-EISAI MEDICAL RESEARCH-EC-2019-060333

PATIENT
  Age: 56 Year
  Sex: Female
  Weight: 99.1 kg

DRUGS (9)
  1. COMPAZINE [Concomitant]
     Active Substance: PROCHLORPERAZINE MALEATE
  2. COLACE [Concomitant]
     Active Substance: DOCUSATE SODIUM
  3. PEMBROLIZUMAB. [Suspect]
     Active Substance: PEMBROLIZUMAB
     Indication: UTERINE LEIOMYOSARCOMA
     Route: 041
     Dates: start: 20190528, end: 20190730
  4. DEXAMETHASONE. [Concomitant]
     Active Substance: DEXAMETHASONE
  5. ZOFRAN [Concomitant]
     Active Substance: ONDANSETRON HYDROCHLORIDE
  6. SENOKOT [Concomitant]
     Active Substance: SENNOSIDES
  7. LACTULOSE. [Concomitant]
     Active Substance: LACTULOSE
  8. ERIBULIN [Suspect]
     Active Substance: ERIBULIN
     Indication: UTERINE LEIOMYOSARCOMA
     Route: 041
     Dates: start: 20190528, end: 20190730
  9. LEVOTHYROXINE. [Concomitant]
     Active Substance: LEVOTHYROXINE

REACTIONS (5)
  - Neutropenia [Recovering/Resolving]
  - Mucosal inflammation [Recovering/Resolving]
  - Hepatic failure [Fatal]
  - Lymphopenia [Unknown]
  - Malignant neoplasm progression [Fatal]

NARRATIVE: CASE EVENT DATE: 20190806
